FAERS Safety Report 21835847 (Version 1)
Quarter: 2023Q1

REPORT INFORMATION
  Report Type: Spontaneous
  Country: GB (occurrence: GB)
  Receive Date: 20230109
  Receipt Date: 20230109
  Transmission Date: 20230417
  Serious: Yes (Other)
  Sender: FDA-Public Use
  Company Number: GB-MHRA-MED-202212290940538130-QZTKJ

PATIENT
  Age: 34 Year
  Sex: Male

DRUGS (4)
  1. BETAMETHASONE DIPROPIONATE\CLOTRIMAZOLE [Suspect]
     Active Substance: BETAMETHASONE DIPROPIONATE\CLOTRIMAZOLE
     Indication: Psoriasis
     Dosage: THINLY APPLIED TO IMPACTED AREA AT NIGHT
     Dates: start: 20221215, end: 20221228
  2. CITALOPRAM [Concomitant]
     Active Substance: CITALOPRAM HYDROBROMIDE
     Indication: Anxiety
     Dosage: UNK
  3. DERMOL [BENZALKONIUM CHLORIDE;CHLORHEXIDINE HYDROCHLORIDE;ISOPROPYL MY [Concomitant]
     Indication: Psoriasis
     Dosage: UNK
     Dates: start: 20221117
  4. MOMETASONE [Concomitant]
     Active Substance: MOMETASONE
     Indication: Psoriasis
     Dosage: UNK
     Dates: start: 20221117, end: 20221215

REACTIONS (4)
  - Application site rash [Recovering/Resolving]
  - Hypersensitivity [Recovering/Resolving]
  - Application site pain [Unknown]
  - Application site pustules [Unknown]

NARRATIVE: CASE EVENT DATE: 20221224
